FAERS Safety Report 7553690-9 (Version None)
Quarter: 2011Q2

REPORT INFORMATION
  Report Type: 
  Country: None (occurrence: None)
  Receive Date: 20110617
  Receipt Date: 20110405
  Transmission Date: 20111010
  Serious: Yes (Hospitalization, Other)
  Sender: FDA-Public Use
  Company Number: FR-JNJFOC-20110310912

PATIENT
  Sex: Male
  Weight: 56 kg

DRUGS (7)
  1. REMICADE [Suspect]
     Route: 042
     Dates: start: 20101116
  2. HUMIRA [Concomitant]
  3. MESALAMINE [Concomitant]
     Route: 048
  4. REMICADE [Suspect]
     Route: 042
     Dates: start: 20091029
  5. REMICADE [Suspect]
     Indication: CROHN'S DISEASE
     Route: 042
     Dates: start: 20100930
  6. BLOOD TRANSFUSION [Concomitant]
  7. PREDNISONE [Concomitant]

REACTIONS (1)
  - CROHN'S DISEASE [None]
